FAERS Safety Report 8983160 (Version 1)
Quarter: 2012Q4

REPORT INFORMATION
  Report Type: 
  Country: US (occurrence: US)
  Receive Date: 20121212
  Receipt Date: 20121212
  Transmission Date: 20130627
  Serious: Yes (Death, Hospitalization)
  Sender: FDA-Public Use
  Company Number: US-ASTELLAS-1104978

PATIENT
  Age: 87 Year
  Sex: Female

DRUGS (2)
  1. TARCEVA [Suspect]
     Indication: MALIGNANT RESPIRATORY TRACT NEOPLASM
     Route: 048
  2. TARCEVA [Suspect]
     Route: 048
     Dates: start: 20050820, end: 20050820

REACTIONS (9)
  - Lung neoplasm malignant [Fatal]
  - Syncope [Recovered/Resolved]
  - Rash pruritic [Unknown]
  - Diarrhoea [Unknown]
  - Rash [Unknown]
  - Dehydration [Unknown]
  - Pain [Unknown]
  - Pruritus [Unknown]
  - Anaemia [Unknown]
